APPROVED DRUG PRODUCT: CORLOPAM
Active Ingredient: FENOLDOPAM MESYLATE
Strength: EQ 10MG BASE/ML **Federal Register determination that product was not discontinued or withdrawn for safety or effectiveness reasons**
Dosage Form/Route: INJECTABLE;INJECTION
Application: N019922 | Product #001
Applicant: HOSPIRA INC
Approved: Sep 23, 1997 | RLD: Yes | RS: No | Type: DISCN